FAERS Safety Report 4516862-3 (Version None)
Quarter: 2004Q4

REPORT INFORMATION
  Report Type: 
  Country: None (occurrence: None)
  Receive Date: 20041202
  Receipt Date: 20041129
  Transmission Date: 20050328
  Serious: Yes (Other)
  Sender: FDA-Public Use
  Company Number: FR-GLAXOSMITHKLINE-B0358724A

PATIENT
  Age: 73 Year
  Sex: Female

DRUGS (5)
  1. IMIGRANE [Suspect]
     Indication: MIGRAINE
     Dosage: 50MG SEE DOSAGE TEXT
     Route: 048
  2. TRAMADOL [Concomitant]
     Dosage: 1UD SIX TIMES PER DAY
     Route: 048
  3. SERC [Concomitant]
     Route: 048
  4. RIVOTRIL [Concomitant]
     Route: 048
  5. MEPRONIZINE [Concomitant]
     Route: 048

REACTIONS (2)
  - DRUG ABUSER [None]
  - MIGRAINE [None]
